FAERS Safety Report 21423586 (Version 1)
Quarter: 2022Q4

REPORT INFORMATION
  Report Type: Spontaneous
  Country: DE (occurrence: DE)
  Receive Date: 20221007
  Receipt Date: 20221007
  Transmission Date: 20230113
  Serious: Yes (Death, Hospitalization, Other)
  Sender: FDA-Public Use
  Company Number: DE-JNJFOC-20220958211

PATIENT

DRUGS (5)
  1. IBUPROFEN [Suspect]
     Active Substance: IBUPROFEN
     Indication: Product used for unknown indication
     Route: 065
  2. ACETAMINOPHEN [Suspect]
     Active Substance: ACETAMINOPHEN
     Indication: Product used for unknown indication
     Route: 065
  3. QUETIAPINE [Suspect]
     Active Substance: QUETIAPINE
     Indication: Product used for unknown indication
     Route: 065
  4. MIRTAZAPINE [Suspect]
     Active Substance: MIRTAZAPINE
     Indication: Product used for unknown indication
     Route: 065
  5. CITALOPRAM [Suspect]
     Active Substance: CITALOPRAM HYDROBROMIDE
     Indication: Product used for unknown indication
     Route: 065

REACTIONS (19)
  - Suicide attempt [Fatal]
  - Poisoning deliberate [Fatal]
  - Tachycardia [Fatal]
  - Coma [Fatal]
  - Fatigue [Fatal]
  - General physical health deterioration [Fatal]
  - Hypotension [Fatal]
  - Supraventricular extrasystoles [Fatal]
  - Respiratory failure [Fatal]
  - Agitation [Fatal]
  - Mydriasis [Fatal]
  - Abnormal behaviour [Fatal]
  - Sopor [Fatal]
  - Somnolence [Fatal]
  - Hypertension [Fatal]
  - Vomiting [Fatal]
  - Dizziness [Fatal]
  - Nausea [Fatal]
  - Abdominal pain [Fatal]
